FAERS Safety Report 14258037 (Version 2)
Quarter: 2018Q2

REPORT INFORMATION
  Report Type: Report from Study
  Country: None (occurrence: US)
  Receive Date: 20171207
  Receipt Date: 20180621
  Transmission Date: 20180711
  Serious: Yes (Other)
  Sender: FDA-Public Use
  Company Number: US-ABBVIE-17K-163-2182108-00

PATIENT
  Sex: Female

DRUGS (3)
  1. METHOTREXATE. [Suspect]
     Active Substance: METHOTREXATE
     Route: 065
  2. HUMIRA [Suspect]
     Active Substance: ADALIMUMAB
     Indication: CROHN^S DISEASE
     Route: 058
  3. METHOTREXATE. [Suspect]
     Active Substance: METHOTREXATE
     Indication: PRODUCT USED FOR UNKNOWN INDICATION
     Route: 065

REACTIONS (14)
  - Tongue neoplasm malignant stage unspecified [Unknown]
  - Mouth ulceration [Unknown]
  - Arthropathy [Not Recovered/Not Resolved]
  - Pharyngeal ulceration [Unknown]
  - Oropharyngeal dysplasia [Unknown]
  - Leukoplakia [Unknown]
  - Pharyngeal inflammation [Unknown]
  - Tooth extraction [Unknown]
  - Throat irritation [Unknown]
  - Tongue discomfort [Unknown]
  - Muscle disorder [Not Recovered/Not Resolved]
  - Conjunctivitis [Unknown]
  - Nasopharyngitis [Unknown]
  - Oropharyngeal pain [Unknown]
